FAERS Safety Report 4594508-6 (Version None)
Quarter: 2005Q1

REPORT INFORMATION
  Report Type: 
  Country: None (occurrence: None)
  Receive Date: 20050301
  Receipt Date: 20040406
  Transmission Date: 20050727
  Serious: No
  Sender: FDA-Public Use
  Company Number: US-GLAXOSMITHKLINE-A0505969A

PATIENT
  Age: 58 Year
  Sex: Male

DRUGS (2)
  1. VALTREX [Suspect]
     Dosage: 250MG PER DAY
     Route: 048
  2. NO CONCURRENT MEDICATION [Concomitant]

REACTIONS (1)
  - RASH PAPULAR [None]
